FAERS Safety Report 6886284-9 (Version None)
Quarter: 2010Q3

REPORT INFORMATION
  Report Type: 
  Country: None (occurrence: None)
  Receive Date: 20100729
  Receipt Date: 20090508
  Transmission Date: 20110219
  Serious: No
  Sender: FDA-Public Use
  Company Number: US-PFIZER INC-2009181776

PATIENT
  Sex: Female
  Weight: 79.4 kg

DRUGS (6)
  1. CELEBREX [Suspect]
     Indication: ARTHRITIS
     Dosage: 1000 MG/DAY
     Dates: start: 20090101
  2. NEURONTIN [Concomitant]
     Dosage: UNK
  3. MIRAPEX [Concomitant]
     Dosage: UNK
  4. SKELAXIN [Concomitant]
     Dosage: UNK
  5. CRESTOR [Concomitant]
     Dosage: UNK
  6. PRILOSEC [Concomitant]
     Dosage: UNK

REACTIONS (2)
  - INCORRECT DOSE ADMINISTERED [None]
  - PANIC REACTION [None]
